FAERS Safety Report 4523601-9 (Version None)
Quarter: 2004Q4

REPORT INFORMATION
  Report Type: 
  Country: None (occurrence: None)
  Receive Date: 20041209
  Receipt Date: 20041209
  Transmission Date: 20050328
  Serious: No
  Sender: FDA-Public Use
  Company Number: None

PATIENT
  Sex: Male

DRUGS (1)
  1. PAXIL [Suspect]

REACTIONS (4)
  - ANXIETY [None]
  - CONDITION AGGRAVATED [None]
  - HEADACHE [None]
  - SUICIDE ATTEMPT [None]
